FAERS Safety Report 16533870 (Version 4)
Quarter: 2020Q2

REPORT INFORMATION
  Report Type: Report from Study
  Country: US (occurrence: US)
  Receive Date: 20190705
  Receipt Date: 20200408
  Transmission Date: 20200713
  Serious: No
  Sender: FDA-Public Use
  Company Number: PHEH2019US028064

PATIENT
  Age: 14 Year
  Sex: Male

DRUGS (6)
  1. ILARIS [Suspect]
     Active Substance: CANAKINUMAB
     Dosage: UNK
     Route: 058
     Dates: start: 20190630
  2. ILARIS [Suspect]
     Active Substance: CANAKINUMAB
     Indication: STILL^S DISEASE
     Dosage: 140 MG, Q2W
     Route: 058
     Dates: start: 20180315
  3. ILARIS [Suspect]
     Active Substance: CANAKINUMAB
     Dosage: UNK
     Route: 058
     Dates: start: 20190619
  4. ILARIS [Suspect]
     Active Substance: CANAKINUMAB
     Dosage: UNK
     Route: 065
  5. ILARIS [Suspect]
     Active Substance: CANAKINUMAB
     Dosage: 140 MG, Q2W
     Route: 058
     Dates: start: 20180412
  6. ILARIS [Suspect]
     Active Substance: CANAKINUMAB
     Dosage: 150 MG, Q2W
     Route: 058
     Dates: start: 20200313, end: 20200313

REACTIONS (2)
  - Inappropriate schedule of product administration [Recovered/Resolved]
  - Incorrect dose administered [Unknown]

NARRATIVE: CASE EVENT DATE: 20200313
